FAERS Safety Report 6666140-1 (Version None)
Quarter: 2010Q1

REPORT INFORMATION
  Report Type: 
  Country: None (occurrence: None)
  Receive Date: 20100330
  Receipt Date: 20100319
  Transmission Date: 20100710
  Serious: No
  Sender: FDA-Public Use
  Company Number: OPER20100042

PATIENT
  Age: 59 Year
  Sex: Female
  Weight: 127.0072 kg

DRUGS (1)
  1. OPANA ER [Suspect]
     Indication: PAIN
     Dosage: 40 MG Q12H, ORAL
     Route: 048
     Dates: start: 20091101, end: 20091114

REACTIONS (4)
  - CHEST DISCOMFORT [None]
  - CHEST PAIN [None]
  - DYSPNOEA [None]
  - PAIN IN EXTREMITY [None]
